FAERS Safety Report 19905577 (Version 2)
Quarter: 2022Q3

REPORT INFORMATION
  Report Type: Report from Study
  Country: US (occurrence: US)
  Receive Date: 20211001
  Receipt Date: 20220803
  Transmission Date: 20221026
  Serious: No
  Sender: FDA-Public Use
  Company Number: US-TAKEDA-2021TUS059898

PATIENT
  Sex: Female

DRUGS (2)
  1. IXAZOMIB [Suspect]
     Active Substance: IXAZOMIB
     Indication: Plasma cell myeloma
     Dosage: 4 MILLIGRAM
     Route: 048
     Dates: start: 20200827
  2. IXAZOMIB [Suspect]
     Active Substance: IXAZOMIB
     Indication: Amyloidosis

REACTIONS (5)
  - Myalgia [Unknown]
  - Neck pain [Unknown]
  - Nausea [Unknown]
  - Off label use [Unknown]
  - Product dose omission issue [Unknown]
